FAERS Safety Report 17859249 (Version 1)
Quarter: 2020Q2

REPORT INFORMATION
  Report Type: Spontaneous
  Country: GB (occurrence: GB)
  Receive Date: 20200604
  Receipt Date: 20200604
  Transmission Date: 20200714
  Serious: Yes (Hospitalization)
  Sender: FDA-Public Use
  Company Number: GB-DEXPHARM-20200454

PATIENT
  Age: 70 Year
  Sex: Male

DRUGS (14)
  1. QUETIAPINE. [Concomitant]
     Active Substance: QUETIAPINE
     Dosage: 25MG - THREE IN THE MORNING. 100MG - 1 AT NIGHT.
  2. NICORANDIL [Concomitant]
     Active Substance: NICORANDIL
  3. ADCAL-D3 [Concomitant]
     Active Substance: CALCIUM CARBONATE\CHOLECALCIFEROL
     Dosage: 750MG/200UNIT CAPLETS
  4. LORAZEPAM. [Concomitant]
     Active Substance: LORAZEPAM
     Indication: AGITATION
     Dosage: 0.5MG UP TO A MAXIMUM OF 1MG IN 24 HOURS
  5. TRAZODONE [Concomitant]
     Active Substance: TRAZODONE HYDROCHLORIDE
     Dosage: AT NIGHT
  6. LAMOTRIGINE. [Concomitant]
     Active Substance: LAMOTRIGINE
     Dosage: 50MG OM AND 25MG ON
  7. BISOPROLOL [Concomitant]
     Active Substance: BISOPROLOL
  8. METFORMIN [Concomitant]
     Active Substance: METFORMIN HYDROCHLORIDE
     Dosage: WITH MEALS
  9. OMEPRAZOLE. [Suspect]
     Active Substance: OMEPRAZOLE
  10. MEMANTINE. [Concomitant]
     Active Substance: MEMANTINE
     Dosage: MORNING
  11. LAMOTRIGINE. [Concomitant]
     Active Substance: LAMOTRIGINE
     Dosage: 50MG OM AND 25MG ON
  12. CLOPIDOGREL [Concomitant]
     Active Substance: CLOPIDOGREL BISULFATE
  13. ATORVASTATIN [Concomitant]
     Active Substance: ATORVASTATIN
     Dosage: AT NIGHT
  14. QUETIAPINE. [Concomitant]
     Active Substance: QUETIAPINE
     Dosage: 25MG - THREE IN THE MORNING. 100MG - 1 AT NIGHT.

REACTIONS (1)
  - Hypomagnesaemia [Unknown]
